FAERS Safety Report 21682179 (Version 2)
Quarter: 2022Q4

REPORT INFORMATION
  Report Type: Report from Study
  Country: PR (occurrence: PR)
  Receive Date: 20221205
  Receipt Date: 20221214
  Transmission Date: 20230113
  Serious: No
  Sender: FDA-Public Use
  Company Number: PR-ABBVIE-4217765

PATIENT
  Sex: Male
  Weight: 107.95 kg

DRUGS (2)
  1. VENCLEXTA [Suspect]
     Active Substance: VENETOCLAX
     Indication: Chronic lymphocytic leukaemia
     Dosage: ALL EVENT ONSET DATE AS 2022
     Route: 048
     Dates: start: 20220816
  2. VENCLEXTA [Suspect]
     Active Substance: VENETOCLAX
     Indication: Chronic lymphocytic leukaemia
     Dosage: TIME INTERVAL: 0.33333333 DAYS
     Route: 048

REACTIONS (5)
  - Fatigue [Unknown]
  - Insomnia [Unknown]
  - Back pain [Unknown]
  - White blood cell count decreased [Not Recovered/Not Resolved]
  - Red blood cell count decreased [Not Recovered/Not Resolved]
